FAERS Safety Report 9502415 (Version 1)
Quarter: 2013Q3

REPORT INFORMATION
  Report Type: Spontaneous
  Country: GB (occurrence: GB)
  Receive Date: 20130906
  Receipt Date: 20130906
  Transmission Date: 20140515
  Serious: Yes (Other)
  Sender: FDA-Public Use
  Company Number: GB-ABBOTT-13X-167-1142376-00

PATIENT
  Age: 29 Year
  Sex: Male

DRUGS (7)
  1. EPILIM [Suspect]
     Indication: EPILEPSY
     Dates: start: 2005
  2. TOPAMAX [Concomitant]
     Indication: PRODUCT USED FOR UNKNOWN INDICATION
  3. ASPIRIN [Concomitant]
     Indication: PRODUCT USED FOR UNKNOWN INDICATION
  4. CETIRIZINE [Concomitant]
     Indication: PRODUCT USED FOR UNKNOWN INDICATION
  5. METOPROLOL [Concomitant]
     Indication: PRODUCT USED FOR UNKNOWN INDICATION
  6. RAMIPRIL [Concomitant]
     Indication: PRODUCT USED FOR UNKNOWN INDICATION
  7. SIMVASTATIN [Concomitant]
     Indication: PRODUCT USED FOR UNKNOWN INDICATION

REACTIONS (9)
  - Visual impairment [Unknown]
  - Convulsion [Unknown]
  - Pruritus [Unknown]
  - Vision blurred [Unknown]
  - Mood swings [Unknown]
  - Chest pain [Unknown]
  - Mental disorder [Unknown]
  - Dizziness [Unknown]
  - Alopecia [Unknown]
